FAERS Safety Report 5221653-4 (Version None)
Quarter: 2007Q1

REPORT INFORMATION
  Report Type: 
  Country: None (occurrence: None)
  Receive Date: 20070129
  Receipt Date: 20070116
  Transmission Date: 20070707
  Serious: Yes (Other)
  Sender: FDA-Public Use
  Company Number: PHFR2007GB00560

PATIENT
  Age: 15 Year
  Sex: Male
  Weight: 72.5 kg

DRUGS (1)
  1. TEGRETOL [Suspect]
     Dosage: 600 MG, BID
     Route: 048
     Dates: start: 20060601, end: 20061225

REACTIONS (4)
  - DEPRESSED LEVEL OF CONSCIOUSNESS [None]
  - DISTURBANCE IN ATTENTION [None]
  - ENCEPHALOPATHY [None]
  - PETIT MAL EPILEPSY [None]
